FAERS Safety Report 21909912 (Version 13)
Quarter: 2025Q1

REPORT INFORMATION
  Report Type: Spontaneous
  Country: US (occurrence: US)
  Receive Date: 20230125
  Receipt Date: 20250320
  Transmission Date: 20250408
  Serious: Yes (Other)
  Sender: PFIZER
  Company Number: US-PFIZER INC-PV202300014225

PATIENT
  Age: 84 Year
  Sex: Female

DRUGS (1)
  1. IBRANCE [Suspect]
     Active Substance: PALBOCICLIB
     Indication: Breast cancer female
     Route: 048

REACTIONS (6)
  - Cardiac disorder [Unknown]
  - Product dose omission issue [Unknown]
  - Illness [Recovered/Resolved]
  - Influenza [Unknown]
  - Pain [Unknown]
  - Asthenia [Unknown]
